FAERS Safety Report 10722283 (Version 3)
Quarter: 2015Q1

REPORT INFORMATION
  Report Type: Spontaneous
  Country: US (occurrence: US)
  Receive Date: 20150119
  Receipt Date: 20150310
  Transmission Date: 20150721
  Serious: No
  Sender: FDA-Public Use
  Company Number: US-GLAXOSMITHKLINE-US2014GSK047467

PATIENT
  Sex: Female

DRUGS (2)
  1. IMITREX [Suspect]
     Active Substance: SUMATRIPTAN\SUMATRIPTAN SUCCINATE
     Indication: MIGRAINE
     Dosage: 100 MG, U
     Route: 065
     Dates: start: 1997
  2. IMITREX [Suspect]
     Active Substance: SUMATRIPTAN\SUMATRIPTAN SUCCINATE
     Indication: HEADACHE

REACTIONS (8)
  - Arthropathy [Unknown]
  - Malaise [Unknown]
  - Cystitis [Unknown]
  - Lipoma [Unknown]
  - Arthritis [Unknown]
  - Migraine [Unknown]
  - Overweight [Unknown]
  - Incontinence [Unknown]
